FAERS Safety Report 5112702-2 (Version None)
Quarter: 2006Q3

REPORT INFORMATION
  Report Type: 
  Country: None (occurrence: None)
  Receive Date: 20060922
  Receipt Date: 20060630
  Transmission Date: 20061208
  Serious: Yes (Hospitalization)
  Sender: FDA-Public Use
  Company Number: 2006/198

PATIENT
  Age: 6 Year
  Sex: Female

DRUGS (3)
  1. AMOXICILLIN [Suspect]
     Route: 048
     Dates: start: 20030101
  2. IBUPROFEN [Concomitant]
     Indication: PHARYNGITIS
     Route: 065
     Dates: start: 20030101
  3. PARACETAMOL [Concomitant]
     Indication: PHARYNGITIS
     Route: 065
     Dates: start: 20030101

REACTIONS (3)
  - DRUG HYPERSENSITIVITY [None]
  - HENOCH-SCHONLEIN PURPURA [None]
  - RASH [None]
